FAERS Safety Report 13530150 (Version 1)
Quarter: 2017Q2

REPORT INFORMATION
  Report Type: Spontaneous
  Country: US (occurrence: US)
  Receive Date: 20170509
  Receipt Date: 20170509
  Transmission Date: 20170830
  Serious: No
  Sender: FDA-Public Use
  Company Number: US-UCBSA-2016037554

PATIENT
  Age: 65 Year
  Sex: Female
  Weight: 68 kg

DRUGS (6)
  1. NEUPRO [Suspect]
     Active Substance: ROTIGOTINE
     Dosage: 3 MG
     Dates: start: 201509
  2. NEUPRO [Suspect]
     Active Substance: ROTIGOTINE
     Dosage: 2 MG
     Dates: start: 2015, end: 2015
  3. NEUPRO [Suspect]
     Active Substance: ROTIGOTINE
     Dosage: 4MG
     Dates: start: 20160906
  4. ACYCLOVIR. [Concomitant]
     Active Substance: ACYCLOVIR
     Indication: FIBROMYALGIA
     Dosage: 3200 MG A DAY
  5. NEUPRO [Suspect]
     Active Substance: ROTIGOTINE
     Indication: PARKINSON^S DISEASE
     Dosage: 1 MG,
     Dates: start: 201508, end: 2015
  6. ACYCLOVIR. [Concomitant]
     Active Substance: ACYCLOVIR
     Dosage: 1600 MG
     Dates: start: 20160920

REACTIONS (1)
  - Therapeutic response unexpected [Not Recovered/Not Resolved]

NARRATIVE: CASE EVENT DATE: 201609
